FAERS Safety Report 9219222 (Version 1)
Quarter: 2013Q2

REPORT INFORMATION
  Report Type: Spontaneous
  Country: US (occurrence: US)
  Receive Date: 20130409
  Receipt Date: 20130409
  Transmission Date: 20140414
  Serious: Yes (Other)
  Sender: FDA-Public Use
  Company Number: US-ASTRAZENECA-2007UW01299

PATIENT
  Age: 66 Year
  Sex: Female
  Weight: 67.1 kg

DRUGS (9)
  1. NEXIUM [Suspect]
     Indication: GASTROOESOPHAGEAL REFLUX DISEASE
     Route: 048
  2. PROZAC [Concomitant]
  3. FOSAMAX [Concomitant]
  4. MULTIVITAMINS [Concomitant]
  5. HERBAL PRODUCTS [Concomitant]
  6. VITAMIN D OTC [Concomitant]
     Dosage: 50000 UNITS ONE A WEEK
  7. ZANTAC [Concomitant]
  8. LEXAPRO [Concomitant]
  9. STRONIUM CITRATE [Concomitant]

REACTIONS (8)
  - Fall [Unknown]
  - Ankle fracture [Unknown]
  - Bone density decreased [Unknown]
  - Osteopenia [Unknown]
  - Osteoporosis [Recovered/Resolved]
  - Vitamin D decreased [Unknown]
  - Barrett^s oesophagus [Unknown]
  - Tendon disorder [Unknown]
